FAERS Safety Report 9562851 (Version 1)
Quarter: 2013Q3

REPORT INFORMATION
  Report Type: Spontaneous
  Country: DE (occurrence: DE)
  Receive Date: 20130927
  Receipt Date: 20130927
  Transmission Date: 20140515
  Serious: Yes (Hospitalization, Other)
  Sender: FDA-Public Use
  Company Number: GXKR2013DE002942

PATIENT
  Sex: 0

DRUGS (4)
  1. SERTRALINE [Suspect]
     Indication: DEPRESSION
     Dosage: MATERNAL DOSE: 50 [MG/D ]
     Route: 064
  2. PAROXAT [Concomitant]
     Dosage: MATERNAL DOSE: 40 [MG/D ]
     Route: 064
  3. BETAMETHASONE [Concomitant]
     Indication: MATERNAL THERAPY TO ENHANCE FOETAL LUNG MATURITY
     Route: 064
  4. INSULIN [Concomitant]
     Dosage: MATERNAL INTAKE FROM GESTATIONAL WEEK 24

REACTIONS (3)
  - Premature baby [Recovered/Resolved]
  - Bradycardia neonatal [Recovered/Resolved]
  - Neonatal respiratory distress syndrome [Recovered/Resolved]
